FAERS Safety Report 18245032 (Version 1)
Quarter: 2020Q3

REPORT INFORMATION
  Report Type: Spontaneous
  Country: BE (occurrence: BE)
  Receive Date: 20200909
  Receipt Date: 20200909
  Transmission Date: 20201103
  Serious: Yes (Other)
  Sender: FDA-Public Use
  Company Number: BE-EDENBRIDGE PHARMACEUTICALS, LLC-BE-2020EDE000041

PATIENT
  Age: 64 Year
  Sex: Female

DRUGS (4)
  1. L?THYROXINE                        /00068001/ [Concomitant]
     Active Substance: LEVOTHYROXINE
     Indication: PRODUCT USED FOR UNKNOWN INDICATION
     Route: 065
  2. PREDNISOLONE SODIUM PHOSPHATE. [Suspect]
     Active Substance: PREDNISOLONE SODIUM PHOSPHATE
     Indication: HYPERSENSITIVITY
     Dosage: 80 MG, UNK
     Route: 065
  3. AMOXICILLIN/CLAVULANIC ACID [Concomitant]
     Active Substance: AMOXICILLIN\CLAVULANIC ACID
     Indication: TOOTH INFECTION
     Dosage: 500/62.5 MG
     Route: 065
  4. INFLIXIMAB [Concomitant]
     Active Substance: INFLIXIMAB
     Indication: PRODUCT USED FOR UNKNOWN INDICATION
     Route: 065

REACTIONS (5)
  - Hypersensitivity [Unknown]
  - Drug ineffective [Unknown]
  - Loss of consciousness [Unknown]
  - Blood pressure systolic decreased [Unknown]
  - Vomiting [Unknown]
